FAERS Safety Report 5441161-5 (Version None)
Quarter: 2007Q3

REPORT INFORMATION
  Report Type: 
  Country: None (occurrence: None)
  Receive Date: 20070831
  Receipt Date: 20070820
  Transmission Date: 20080115
  Serious: Yes (Other)
  Sender: FDA-Public Use
  Company Number: CA-PFIZER INC-2007069653

PATIENT
  Age: 55 Year
  Sex: Female

DRUGS (2)
  1. LYRICA [Suspect]
     Indication: NEURALGIA
     Route: 048
  2. LIPITOR [Concomitant]
     Route: 048

REACTIONS (2)
  - ASTHENIA [None]
  - TREMOR [None]
